FAERS Safety Report 17889611 (Version 2)
Quarter: 2020Q2

REPORT INFORMATION
  Report Type: Spontaneous
  Country: US (occurrence: US)
  Receive Date: 20200612
  Receipt Date: 20200617
  Transmission Date: 20200714
  Serious: No
  Sender: FDA-Public Use
  Company Number: US-009507513-2006USA004469

PATIENT
  Age: 66 Year
  Sex: Female

DRUGS (1)
  1. INTRON A [Suspect]
     Active Substance: INTERFERON ALFA-2B
     Indication: CUTANEOUS T-CELL LYMPHOMA
     Dosage: 3 MILLION UNITS (0.3 MILLILITER), THREE TIMES A WEEK (TIW)
     Route: 058
     Dates: start: 20200124

REACTIONS (2)
  - Muscle spasms [Unknown]
  - Joint stiffness [Unknown]

NARRATIVE: CASE EVENT DATE: 202005
